FAERS Safety Report 9409259 (Version 1)
Quarter: 2013Q3

REPORT INFORMATION
  Report Type: Spontaneous
  Country: US (occurrence: US)
  Receive Date: 20130719
  Receipt Date: 20130719
  Transmission Date: 20140515
  Serious: No
  Sender: FDA-Public Use
  Company Number: US-PFIZER INC-2013209966

PATIENT
  Age: 22 Year
  Sex: Male
  Weight: 126.98 kg

DRUGS (7)
  1. GABAPENTIN [Suspect]
     Dosage: UNK
     Dates: end: 201307
  2. GABAPENTIN [Suspect]
     Dosage: UNK
     Dates: start: 201307, end: 20130715
  3. DOC-Q-LAX [Concomitant]
     Indication: CONSTIPATION
     Dosage: UNK
  4. PERCOCET [Concomitant]
     Indication: PAIN
     Dosage: UNK
  5. VITAMIN D [Concomitant]
     Dosage: UNK
  6. VITAMIN C [Concomitant]
     Dosage: UNK
  7. CALCIUM [Concomitant]
     Dosage: UNK

REACTIONS (5)
  - Wrong drug administered [Unknown]
  - Affect lability [Unknown]
  - Mood altered [Unknown]
  - Local swelling [Unknown]
  - Anxiety [Unknown]
